FAERS Safety Report 24227986 (Version 1)
Quarter: 2024Q3

REPORT INFORMATION
  Report Type: Spontaneous
  Country: US (occurrence: US)
  Receive Date: 20240820
  Receipt Date: 20240820
  Transmission Date: 20241017
  Serious: No
  Sender: ROCHE
  Company Number: US-ROCHE-10000060850

PATIENT
  Age: 36 Year
  Sex: Female
  Weight: 80.74 kg

DRUGS (3)
  1. RITUXAN [Suspect]
     Active Substance: RITUXIMAB
     Indication: Rheumatoid arthritis
     Dosage: ONCE IN A WEEK, FOR FOUR WEEKS
     Route: 042
     Dates: start: 202408
  2. RITUXAN [Suspect]
     Active Substance: RITUXIMAB
     Indication: Antisynthetase syndrome
  3. RITUXAN [Suspect]
     Active Substance: RITUXIMAB
     Indication: Interstitial lung disease

REACTIONS (2)
  - Off label use [Unknown]
  - No adverse event [Unknown]

NARRATIVE: CASE EVENT DATE: 20240801
